FAERS Safety Report 8792769 (Version 1)
Quarter: 2012Q4

REPORT INFORMATION
  Report Type: 
  Country: US (occurrence: US)
  Receive Date: 20120918
  Receipt Date: 20120918
  Transmission Date: 20130627
  Serious: No
  Sender: FDA-Public Use
  Company Number: US-B.I. PHARMACEUTICALS,INC./RIDGEFIELD-2012-BP-22370BP

PATIENT
  Age: 88 Year
  Sex: Male

DRUGS (5)
  1. AGGRENOX [Suspect]
     Indication: CEREBROVASCULAR ACCIDENT PROPHYLAXIS
     Route: 048
     Dates: start: 201207
  2. DONEPEZIL [Concomitant]
     Indication: DEMENTIA
     Dosage: 10 mg
     Route: 048
  3. ECOGREEN [Concomitant]
     Indication: SUPPLEMENTATION THERAPY
  4. FISH OIL [Concomitant]
     Indication: SUPPLEMENTATION THERAPY
  5. B 12 [Concomitant]
     Indication: SUPPLEMENTATION THERAPY

REACTIONS (1)
  - Muscle spasms [Not Recovered/Not Resolved]
